FAERS Safety Report 15263457 (Version 1)
Quarter: 2018Q3

REPORT INFORMATION
  Report Type: Spontaneous
  Country: US (occurrence: US)
  Receive Date: 20180720
  Receipt Date: 20180720
  Transmission Date: 20181010
  Serious: Yes (Disabling, Other)
  Sender: FDA-Public Use
  Company Number: None

PATIENT
  Age: 58 Year
  Sex: Male
  Weight: 105.75 kg

DRUGS (4)
  1. VALSARTAN TABLETS, USP [Suspect]
     Active Substance: VALSARTAN
     Indication: HYPERTENSION
     Dosage: ?          QUANTITY:90 CAPSULE(S);?
     Route: 048
     Dates: start: 20180601, end: 20180713
  2. AMLODIPINE [Concomitant]
     Active Substance: AMLODIPINE BESYLATE
  3. TEKTURNA [Concomitant]
     Active Substance: ALISKIREN HEMIFUMARATE
  4. PRILOSEC [Concomitant]
     Active Substance: OMEPRAZOLE MAGNESIUM

REACTIONS (7)
  - Neuralgia [None]
  - Insomnia [None]
  - Sleep apnoea syndrome [None]
  - Agitation [None]
  - Pain in extremity [None]
  - Recalled product [None]
  - Drug ineffective [None]

NARRATIVE: CASE EVENT DATE: 20180606
